FAERS Safety Report 17206527 (Version 1)
Quarter: 2019Q4

REPORT INFORMATION
  Report Type: Spontaneous
  Country: SE (occurrence: SE)
  Receive Date: 20191227
  Receipt Date: 20191227
  Transmission Date: 20200122
  Serious: Yes (Hospitalization)
  Sender: FDA-Public Use
  Company Number: SE-TEVA-2019-SE-1157305

PATIENT
  Age: 19 Year
  Sex: Male

DRUGS (2)
  1. PROPAVAN [Suspect]
     Active Substance: PROPIOMAZINE
     Dosage: 375 MG
     Route: 048
     Dates: start: 20180106, end: 20180106
  2. MIRTAZAPINE. [Suspect]
     Active Substance: MIRTAZAPINE
     Dosage: 150 MG
     Route: 048
     Dates: start: 20180106, end: 20180106

REACTIONS (6)
  - Respiratory rate decreased [Recovered/Resolved]
  - Irritability [Unknown]
  - Intentional self-injury [Unknown]
  - Chest pain [Recovered/Resolved]
  - Dysarthria [Recovered/Resolved]
  - Intentional overdose [Unknown]

NARRATIVE: CASE EVENT DATE: 20180106
